FAERS Safety Report 25872059 (Version 2)
Quarter: 2025Q4

REPORT INFORMATION
  Report Type: Spontaneous
  Country: AR (occurrence: AR)
  Receive Date: 20251002
  Receipt Date: 20251107
  Transmission Date: 20260119
  Serious: Yes (Hospitalization, Disabling, Other)
  Sender: ROCHE
  Company Number: AR-002147023-NVSC2025AR074920

PATIENT
  Age: 85 Year
  Sex: Male

DRUGS (12)
  1. XOLAIR [Suspect]
     Active Substance: OMALIZUMAB
     Indication: Asthma
     Dosage: 450 MILLIGRAM PER MILLILITRE, Q2W
     Route: 058
     Dates: start: 2009
  2. XOLAIR [Suspect]
     Active Substance: OMALIZUMAB
     Dosage: 450 MILLIGRAM PER MILLILITRE, Q2W
     Route: 058
     Dates: start: 2009
  3. VENTOLIN [Concomitant]
     Active Substance: ALBUTEROL SULFATE
  4. SERETIDE [Concomitant]
     Active Substance: FLUTICASONE PROPIONATE\SALMETEROL XINAFOATE
  5. COMBIVENT [Concomitant]
     Active Substance: ALBUTEROL SULFATE\IPRATROPIUM BROMIDE
  6. VASTAREL [Concomitant]
     Active Substance: TRIMETAZIDINE DIHYDROCHLORIDE
  7. SINTROM [Concomitant]
     Active Substance: ACENOCOUMAROL
  8. LOSARTAN POTASSIUM [Concomitant]
     Active Substance: LOSARTAN POTASSIUM
  9. Medocor [Concomitant]
  10. Taural [Concomitant]
  11. DICLOFENAC [Concomitant]
     Active Substance: DICLOFENAC
  12. Tafirol [Concomitant]

REACTIONS (5)
  - Lower limb fracture [Recovering/Resolving]
  - Craniofacial fracture [Recovering/Resolving]
  - Haemorrhage [Unknown]
  - Fall [Unknown]
  - Influenza [Recovered/Resolved]

NARRATIVE: CASE EVENT DATE: 20190917
